APPROVED DRUG PRODUCT: CLONIDINE HYDROCHLORIDE
Active Ingredient: CLONIDINE HYDROCHLORIDE
Strength: 0.1MG
Dosage Form/Route: TABLET, EXTENDED RELEASE;ORAL
Application: A209675 | Product #001 | TE Code: AB1
Applicant: NOVAST LABORATORIES LTD
Approved: Mar 5, 2019 | RLD: No | RS: No | Type: RX